FAERS Safety Report 20760659 (Version 2)
Quarter: 2022Q2

REPORT INFORMATION
  Report Type: Spontaneous
  Country: DE (occurrence: DE)
  Receive Date: 20220428
  Receipt Date: 20220531
  Transmission Date: 20220721
  Serious: Yes (Other)
  Sender: FDA-Public Use
  Company Number: DE-PFIZER INC-202101116190

PATIENT
  Age: 58 Year
  Sex: Male

DRUGS (5)
  1. MEROPENEM [Suspect]
     Active Substance: MEROPENEM
     Indication: Enterobacter infection
     Dosage: 2 GRAM, 1 TOTAL
     Route: 040
  2. MEROPENEM [Suspect]
     Active Substance: MEROPENEM
     Indication: Enterococcal infection
     Dosage: 2 GRAM, 3 TIMES A DAY
     Route: 042
  3. COLISTIN [Suspect]
     Active Substance: COLISTIN
     Indication: Enterococcal infection
     Dosage: 2.5 MILLION INTERNATIONAL UNIT, TWO TIMES A DAY
     Route: 042
  4. COLISTIN [Suspect]
     Active Substance: COLISTIN
     Indication: Enterobacter infection
     Dosage: 4.5 MILLION INTERNATIONAL UNIT, TWO TIMES A DAY
     Route: 042
  5. COLISTIN [Suspect]
     Active Substance: COLISTIN
     Dosage: 9 MILLION INTERNATIONAL UNIT, TOTAL (LOADING DOSE)
     Route: 042

REACTIONS (3)
  - Drug resistance [Unknown]
  - Neurological symptom [Unknown]
  - Nervous system disorder [Unknown]
